FAERS Safety Report 9859474 (Version 2)
Quarter: 2014Q1

REPORT INFORMATION
  Report Type: Report from Study
  Country: JP (occurrence: JP)
  Receive Date: 20140131
  Receipt Date: 20140221
  Transmission Date: 20141002
  Serious: Yes (Other)
  Sender: FDA-Public Use
  Company Number: JP-OTSUKA-JP-2014-10446

PATIENT
  Age: 85 Year
  Sex: Female
  Weight: 45.4 kg

DRUGS (14)
  1. SAMSCA [Suspect]
     Indication: FLUID RETENTION
     Dosage: 7.5 MG MILLIGRAM(S), QAM
     Route: 048
     Dates: start: 20131203, end: 20131204
  2. SAMSCA [Suspect]
     Dosage: 15 MG MILLIGRAM(S), QAM
     Route: 048
     Dates: start: 20131205, end: 20131218
  3. MILRILA [Concomitant]
     Indication: CARDIAC FAILURE
     Dosage: 24 MG MILLIGRAM(S), DAILY DOSE
     Route: 041
     Dates: end: 20131210
  4. DOBUX [Concomitant]
     Indication: CARDIAC FAILURE
     Dosage: 432 MG MILLIGRAM(S), DAILY DOSE
     Route: 041
     Dates: end: 20131213
  5. ASCATE [Concomitant]
     Dosage: 3 DF DOSAGE FORM, DAILY DOSE
     Route: 048
     Dates: end: 20131220
  6. PREDOPA [Concomitant]
     Indication: CARDIAC FAILURE
     Dosage: 144 MG MILLIGRAM(S), DAILY DOSE
     Route: 041
  7. FUROSEMIDE [Concomitant]
     Indication: CARDIAC FAILURE
     Dosage: 40 MG MILLIGRAM(S), DAILY DOSE
     Route: 048
  8. BROTIZOLAM [Concomitant]
     Dosage: 0.25 MG MILLIGRAM(S), DAILY DOSE
     Route: 048
  9. OMEPRAZOLE [Concomitant]
     Dosage: 10 MG MILLIGRAM(S), DAILY DOSE
     Route: 048
  10. SPIRONOLACTONE [Concomitant]
     Dosage: 25 MG MILLIGRAM(S), DAILY DOSE
     Route: 048
  11. BAYASPIRIN [Concomitant]
     Dosage: 100 MG MILLIGRAM(S), DAILY DOSE
     Route: 048
  12. PLAVIX [Concomitant]
     Dosage: 75 MG MILLIGRAM(S), DAILY DOSE
     Route: 048
  13. FEBURIC [Concomitant]
     Dosage: 10 MG MILLIGRAM(S), DAILY DOSE
     Route: 048
  14. FUROSEMIDE [Concomitant]
     Indication: CARDIAC FAILURE
     Dosage: 40 MG MILLIGRAM(S), DAILY DOSE
     Route: 042
     Dates: start: 20131203, end: 20131205

REACTIONS (3)
  - Blood urea increased [Unknown]
  - Thirst [Recovering/Resolving]
  - Hypernatraemia [Recovering/Resolving]
